FAERS Safety Report 6305305-5 (Version None)
Quarter: 2009Q3

REPORT INFORMATION
  Report Type: 
  Country: None (occurrence: None)
  Receive Date: 20090811
  Receipt Date: 20090807
  Transmission Date: 20100115
  Serious: No
  Sender: FDA-Public Use
  Company Number: GB-EISAI INC.-E2080-00194-SPO-GB

PATIENT
  Age: 9 Year
  Sex: Female
  Weight: 26 kg

DRUGS (8)
  1. INOVELON [Suspect]
     Route: 048
     Dates: start: 20080901
  2. OMEPRAZOLE [Concomitant]
     Dosage: UNKNOWN
     Route: 065
  3. KEPPRA [Concomitant]
     Route: 048
  4. NULYTELY [Concomitant]
     Indication: CONSTIPATION
     Dosage: UNKNOWN
     Route: 065
  5. ERYTHROMYCIN [Concomitant]
     Dosage: UNKNOWN
     Route: 065
  6. PARACETAMOL [Concomitant]
  7. CODEINE [Concomitant]
  8. IBUPROFEN [Concomitant]

REACTIONS (3)
  - ALOPECIA [None]
  - HAEMORRHAGE [None]
  - OBSESSIVE-COMPULSIVE DISORDER [None]
